FAERS Safety Report 17822435 (Version 1)
Quarter: 2020Q2

REPORT INFORMATION
  Report Type: Spontaneous
  Country: US (occurrence: US)
  Receive Date: 20200526
  Receipt Date: 20200526
  Transmission Date: 20200714
  Serious: No
  Sender: FDA-Public Use
  Company Number: US-GLAXOSMITHKLINE-US2020087456

PATIENT
  Age: 60 Year
  Sex: Female

DRUGS (1)
  1. ARNUITY ELLIPTA [Suspect]
     Active Substance: FLUTICASONE FUROATE
     Indication: COUGH
     Dosage: 1 DF, 1D
     Route: 065
     Dates: start: 20200214, end: 202003

REACTIONS (2)
  - Product dose omission [Unknown]
  - Impaired healing [Unknown]

NARRATIVE: CASE EVENT DATE: 202003
